FAERS Safety Report 14488211 (Version 1)
Quarter: 2018Q1

REPORT INFORMATION
  Report Type: Spontaneous
  Country: FR (occurrence: FR)
  Receive Date: 20180205
  Receipt Date: 20180205
  Transmission Date: 20180509
  Serious: Yes (Other)
  Sender: FDA-Public Use
  Company Number: FR-MYLANLABS-2018M1006915

PATIENT
  Sex: Male

DRUGS (1)
  1. MINOCYCLINE [Suspect]
     Active Substance: MINOCYCLINE\MINOCYCLINE HYDROCHLORIDE
     Indication: ACNE
     Dosage: 100 MG, QD
     Route: 065

REACTIONS (8)
  - Lateral medullary syndrome [Recovered/Resolved]
  - Antiphospholipid antibodies positive [Recovered/Resolved]
  - IIIrd nerve disorder [Recovered/Resolved]
  - Cerebrovascular accident [Recovered/Resolved]
  - Antiphospholipid syndrome [Recovered/Resolved]
  - Infarction [Recovered/Resolved]
  - Beta-2 glycoprotein antibody positive [Recovered/Resolved]
  - Diplopia [Recovered/Resolved]
